FAERS Safety Report 10013378 (Version 3)
Quarter: 2014Q1

REPORT INFORMATION
  Report Type: Report from Study
  Country: CA (occurrence: CA)
  Receive Date: 20140314
  Receipt Date: 20140326
  Transmission Date: 20141002
  Serious: Yes (Other)
  Sender: FDA-Public Use
  Company Number: CA-ABBVIE-14P-028-1208292-00

PATIENT
  Age: 47 Year
  Sex: Female

DRUGS (6)
  1. HUMIRA [Suspect]
     Indication: CROHN^S DISEASE
     Route: 058
     Dates: start: 2011, end: 20130511
  2. HUMIRA [Suspect]
     Route: 058
     Dates: end: 20131217
  3. HUMIRA [Suspect]
     Route: 058
     Dates: start: 20140217
  4. IMURAN [Concomitant]
     Indication: CROHN^S DISEASE
  5. AZATHIOPRINE [Concomitant]
     Indication: CROHN^S DISEASE
     Route: 048
  6. ENDOCET [Concomitant]
     Indication: PAIN
     Dosage: 1-2 TABLETS; EVERY 6 HOURS PRN
     Route: 048

REACTIONS (5)
  - Weight decreased [Recovering/Resolving]
  - Aphagia [Recovering/Resolving]
  - Abscess intestinal [Unknown]
  - Small intestinal obstruction [Unknown]
  - Incorrect dose administered [Unknown]
